FAERS Safety Report 12995336 (Version 2)
Quarter: 2016Q4

REPORT INFORMATION
  Report Type: Spontaneous
  Country: JP (occurrence: JP)
  Receive Date: 20161202
  Receipt Date: 20161230
  Transmission Date: 20170207
  Serious: Yes (Death)
  Sender: FDA-Public Use
  Company Number: JP-TEVA-715926ISR

PATIENT
  Age: 81 Year
  Sex: Male

DRUGS (5)
  1. THROMBOMODULIN ALFA [Concomitant]
     Active Substance: THROMBOMODULIN ALFA
     Indication: PROPHYLAXIS
     Route: 065
  2. SPIRONOLACTONE. [Suspect]
     Active Substance: SPIRONOLACTONE
     Indication: ASCITES
     Route: 065
     Dates: start: 201512
  3. AZOSEMIDE [Suspect]
     Active Substance: AZOSEMIDE
     Indication: ASCITES
     Route: 065
     Dates: start: 201512
  4. FUROSEMIDE. [Suspect]
     Active Substance: FUROSEMIDE
     Indication: ASCITES
     Route: 065
     Dates: start: 201512
  5. TOLVAPTAN [Suspect]
     Active Substance: TOLVAPTAN
     Indication: ASCITES
     Route: 065
     Dates: start: 201512

REACTIONS (1)
  - Haemorrhagic infarction [Fatal]

NARRATIVE: CASE EVENT DATE: 2016
